FAERS Safety Report 14033256 (Version 1)
Quarter: 2017Q4

REPORT INFORMATION
  Report Type: Spontaneous
  Country: US (occurrence: US)
  Receive Date: 20171003
  Receipt Date: 20171003
  Transmission Date: 20180321
  Serious: No
  Sender: FDA-Public Use
  Company Number: US-PFIZER INC-2017426063

PATIENT
  Age: 78 Year
  Sex: Male
  Weight: 70.31 kg

DRUGS (2)
  1. CELEBREX [Suspect]
     Active Substance: CELECOXIB
     Indication: DANDY-WALKER SYNDROME
  2. CELEBREX [Suspect]
     Active Substance: CELECOXIB
     Indication: ADENOMATOUS POLYPOSIS COLI
     Dosage: 200 MG, 2X/DAY
     Dates: start: 20140425

REACTIONS (3)
  - Diarrhoea [Unknown]
  - Influenza [Unknown]
  - Nausea [Unknown]
